FAERS Safety Report 10047719 (Version 2)
Quarter: 2014Q2

REPORT INFORMATION
  Report Type: Spontaneous
  Country: US (occurrence: US)
  Receive Date: 20140331
  Receipt Date: 20140422
  Transmission Date: 20141212
  Serious: Yes (Hospitalization)
  Sender: FDA-Public Use
  Company Number: US-BAYER-2014-046479

PATIENT
  Age: 22 Year
  Sex: Female

DRUGS (4)
  1. YASMIN [Suspect]
     Dosage: UNK
     Dates: start: 20060829
  2. YAZ [Suspect]
     Route: 048
  3. OCELLA [Suspect]
     Route: 048
  4. GIANVI [Suspect]
     Route: 048

REACTIONS (5)
  - Pulmonary embolism [None]
  - Emotional distress [None]
  - Pain [None]
  - Injury [None]
  - Pain [None]
